FAERS Safety Report 7620996-4 (Version None)
Quarter: 2011Q3

REPORT INFORMATION
  Report Type: 
  Country: None (occurrence: None)
  Receive Date: 20110719
  Receipt Date: 20100726
  Transmission Date: 20111222
  Serious: No
  Sender: FDA-Public Use
  Company Number: US-KINGPHARMUSA00001-K201000932

PATIENT
  Age: 69 Year
  Sex: Female
  Weight: 56.689 kg

DRUGS (4)
  1. LEVOXYL [Suspect]
     Dosage: 25 MCG, QD
     Route: 048
     Dates: start: 20090101, end: 20100301
  2. LEVOXYL [Suspect]
     Indication: HYPOTHYROIDISM
     Dosage: 50 MCG, QD
     Route: 048
     Dates: start: 20100301
  3. VITAMIN D [Concomitant]
     Dosage: UNK
  4. CITRACAL [Concomitant]
     Dosage: UNK

REACTIONS (5)
  - WEIGHT LOSS POOR [None]
  - HAIR TEXTURE ABNORMAL [None]
  - DRUG INEFFECTIVE [None]
  - HYPERTRICHOSIS [None]
  - ALOPECIA [None]
